FAERS Safety Report 15760421 (Version 2)
Quarter: 2019Q3

REPORT INFORMATION
  Report Type: Spontaneous
  Country: IN (occurrence: IN)
  Receive Date: 20181226
  Receipt Date: 20190812
  Transmission Date: 20191004
  Serious: Yes (Hospitalization, Other)
  Sender: FDA-Public Use
  Company Number: IN-MACLEODS PHARMACEUTICALS US LTD-MAC2018019249

PATIENT

DRUGS (8)
  1. TRAMADOL HYDROCHLORIDE. [Suspect]
     Active Substance: TRAMADOL HYDROCHLORIDE
     Dosage: 50 MILLIGRAM
     Route: 048
  2. THIAMINE HYDROCHLORIDE/CALCIUM PANTOTHENATE/YANOCOBALAMIN/DEXPANTHENOL [Concomitant]
     Dosage: 3 ML IN 100 ML OF NS
     Route: 042
  3. TRAMAZAC [TRAMADOL] [Suspect]
     Active Substance: TRAMADOL
     Indication: CHEST PAIN
     Dosage: 100 MILLIGRAM, QD
     Route: 042
  4. SODIUM CHLORIDE. [Concomitant]
     Active Substance: SODIUM CHLORIDE
     Indication: PRODUCT USED FOR UNKNOWN INDICATION
     Dosage: 100 ML QD INJECTION
     Route: 042
  5. TRAMADOL HYDROCHLORIDE. [Suspect]
     Active Substance: TRAMADOL HYDROCHLORIDE
     Indication: CHEST PAIN
     Dosage: 50 MILLIGRAM, QD
     Route: 048
  6. RABEPRAZOLE [Concomitant]
     Active Substance: RABEPRAZOLE
     Indication: PRODUCT USED FOR UNKNOWN INDICATION
     Dosage: 20 MILLIGRAM, BID
     Route: 042
  7. TRAMADOL HYDROCHLORIDE. [Suspect]
     Active Substance: TRAMADOL HYDROCHLORIDE
     Dosage: 100 MILLIGRAM, QD
     Route: 048
  8. EMSET [Concomitant]
     Indication: PRODUCT USED FOR UNKNOWN INDICATION
     Dosage: 4 MILLIGRAM, QD
     Route: 042

REACTIONS (1)
  - Parkinsonism [Recovered/Resolved]
